FAERS Safety Report 4906689-2 (Version None)
Quarter: 2006Q1

REPORT INFORMATION
  Report Type: 
  Country: None (occurrence: None)
  Receive Date: 20060206
  Receipt Date: 20060123
  Transmission Date: 20060701
  Serious: Yes (Hospitalization)
  Sender: FDA-Public Use
  Company Number: 221394

PATIENT
  Age: 80 Year
  Sex: Male
  Weight: 65.9 kg

DRUGS (12)
  1. AVASTIN(BEVACIZUMAB) PWDR + SOLVENT,INFUSION SOLN, 100MG [Suspect]
     Indication: GALLBLADDER CANCER
     Dosage: 5  MG/KG, Q2W, INTRAVENOUS
     Route: 042
     Dates: start: 20051205, end: 20060103
  2. CAPECITABINE (CAPECITABINE) [Suspect]
     Indication: GALLBLADDER CANCER
     Dosage: 825 MG/M2, BID, ORAL
     Route: 048
     Dates: start: 20051205, end: 20060107
  3. OXALIPLATIN (OXALIPLATIN) [Suspect]
     Indication: GALLBLADDER CANCER
     Dosage: 50 MG/M2, 1/WEEK, INTRAVENOUS
     Route: 042
     Dates: start: 20051205, end: 20060103
  4. ASPIRIN [Concomitant]
  5. MVI (MULTIVITAMINS NOS) [Concomitant]
  6. DEXAMETHASONE [Concomitant]
  7. ONDANSETRON [Concomitant]
  8. LORAZEPAM [Concomitant]
  9. COMPAZINE [Concomitant]
  10. TOPROL-XL [Concomitant]
  11. MEGACE [Concomitant]
  12. OMEPRAZOLE [Concomitant]

REACTIONS (8)
  - ASTHENIA [None]
  - CHOLANGITIS [None]
  - DEHYDRATION [None]
  - FAILURE TO THRIVE [None]
  - HICCUPS [None]
  - MALIGNANT NEOPLASM PROGRESSION [None]
  - PNEUMONIA [None]
  - STENT OCCLUSION [None]
